FAERS Safety Report 11071647 (Version 1)
Quarter: 2015Q2

REPORT INFORMATION
  Report Type: Spontaneous
  Country: US (occurrence: US)
  Receive Date: 20150428
  Receipt Date: 20150428
  Transmission Date: 20150821
  Serious: Yes (Other)
  Sender: FDA-Public Use
  Company Number: US-ASTRAZENECA-2013SE84089

PATIENT
  Age: 26921 Day
  Sex: Female

DRUGS (38)
  1. JANUVIA [Suspect]
     Active Substance: SITAGLIPTIN PHOSPHATE
     Indication: TYPE 2 DIABETES MELLITUS
     Route: 065
     Dates: start: 200903, end: 200911
  2. LANTUS SOLOSTAR [Concomitant]
     Active Substance: INSULIN GLARGINE
     Dosage: 100 UNITS/ML
     Dates: start: 20110129
  3. PROMETHAZINE [Concomitant]
     Active Substance: PROMETHAZINE\PROMETHAZINE HYDROCHLORIDE
     Dates: start: 20130531
  4. GLUCOTROL XL [Concomitant]
     Active Substance: GLIPIZIDE
     Dates: start: 20000501
  5. ALTACE [Concomitant]
     Active Substance: RAMIPRIL
     Dates: start: 20000412
  6. BYETTA [Suspect]
     Active Substance: EXENATIDE
     Indication: TYPE 2 DIABETES MELLITUS
     Route: 065
     Dates: start: 200609, end: 200611
  7. LISINOPRIL. [Concomitant]
     Active Substance: LISINOPRIL
     Dates: start: 20101030
  8. HYDROCODONE/APAP [Concomitant]
     Active Substance: ACETAMINOPHEN\HYDROCODONE
     Dosage: 5/500 TAB
     Dates: start: 20060702
  9. METFORMIN HCL [Concomitant]
     Active Substance: METFORMIN HYDROCHLORIDE
     Route: 048
     Dates: start: 20041220
  10. BYETTA [Suspect]
     Active Substance: EXENATIDE
     Indication: TYPE 2 DIABETES MELLITUS
     Route: 065
     Dates: start: 20061014
  11. VICTOZA [Suspect]
     Active Substance: LIRAGLUTIDE
     Indication: TYPE 2 DIABETES MELLITUS
     Route: 065
     Dates: start: 201008
  12. TRAMADOL HCL [Concomitant]
     Active Substance: TRAMADOL HYDROCHLORIDE
     Dates: start: 20060705
  13. FEXOFENADINE HCL [Concomitant]
     Active Substance: FEXOFENADINE HYDROCHLORIDE
     Dates: start: 20080602
  14. FENTANYL. [Concomitant]
     Active Substance: FENTANYL
     Dosage: 50 MCG IV EVERY TWO MINUTES
     Dates: start: 20130515
  15. DILAUDID [Concomitant]
     Active Substance: HYDROMORPHONE HYDROCHLORIDE
     Dosage: 0.4MG IV EVERY FIVE MINUTES
     Dates: start: 20130515
  16. VERSED [Concomitant]
     Active Substance: MIDAZOLAM HYDROCHLORIDE
     Dosage: 1 MG
     Dates: start: 20130515
  17. ZOLPIDEM TARTRATE. [Concomitant]
     Active Substance: ZOLPIDEM TARTRATE
     Dates: start: 20110425
  18. LOSARTAN POTASSIUM. [Concomitant]
     Active Substance: LOSARTAN POTASSIUM
     Dates: start: 20110518
  19. PREMPRO [Concomitant]
     Active Substance: ESTROGENS, CONJUGATED\MEDROXYPROGESTERONE ACETATE
     Dosage: 5MG-0.625
     Dates: start: 20000412
  20. PENICILLIN VK [Concomitant]
     Active Substance: PENICILLIN V POTASSIUM
     Dates: start: 20040326
  21. HYDROCHLOROTHIAZIDE. [Concomitant]
     Active Substance: HYDROCHLOROTHIAZIDE
     Dates: start: 20100910
  22. APRESOLINE HYDROCHLORIDE [Concomitant]
     Active Substance: HYDRALAZINE HYDROCHLORIDE
     Dosage: 5MG IV EVERY 20 MINUTES
     Dates: start: 20130515
  23. ACTONEL [Concomitant]
     Active Substance: RISEDRONATE SODIUM
     Dates: start: 20011017
  24. BYETTA [Suspect]
     Active Substance: EXENATIDE
     Indication: TYPE 2 DIABETES MELLITUS
     Route: 065
     Dates: start: 20060915
  25. COENZYME Q10 [Concomitant]
     Active Substance: UBIDECARENONE
     Dates: start: 20130515
  26. KLOR-CON [Concomitant]
     Active Substance: POTASSIUM CHLORIDE
     Dates: start: 20130108
  27. LEVEMIR [Concomitant]
     Active Substance: INSULIN DETEMIR
     Dosage: 100 UNITS/ML
     Dates: start: 20120514
  28. MOTRIN [Concomitant]
     Active Substance: IBUPROFEN
     Dates: start: 20130515
  29. TORADOL [Concomitant]
     Active Substance: KETOROLAC TROMETHAMINE
     Route: 048
     Dates: start: 20130515
  30. OMEPRAZOLE DR [Concomitant]
     Active Substance: OMEPRAZOLE
     Dates: start: 20120523
  31. ZOFRAN [Concomitant]
     Active Substance: ONDANSETRON HYDROCHLORIDE
     Dates: start: 20130515
  32. DUONEB [Concomitant]
     Active Substance: ALBUTEROL SULFATE\IPRATROPIUM BROMIDE
     Dosage: 3 ML
     Dates: start: 20130515
  33. HUMALOG [Concomitant]
     Active Substance: INSULIN LISPRO
     Dosage: 2-8 UNITS, EVERY ONE HOUR
     Dates: start: 20130515
  34. TRANDATE [Concomitant]
     Active Substance: LABETALOL HYDROCHLORIDE
     Dosage: 5MG IV EVERY 5 MINDTES
     Dates: start: 20130515
  35. PEPCID [Concomitant]
     Active Substance: FAMOTIDINE
     Dosage: 20 MG
     Dates: start: 20130515
  36. MUCINEX [Concomitant]
     Active Substance: GUAIFENESIN
     Dates: start: 20130518
  37. PERCOCET [Concomitant]
     Active Substance: ACETAMINOPHEN\OXYCODONE HYDROCHLORIDE
     Dosage: 5/325, 1-2 TABLETS, EVERY SIX HOURS
     Route: 048
     Dates: start: 20130515
  38. OFIRMEV [Concomitant]
     Active Substance: ACETAMINOPHEN
     Dosage: 1,000 MG
     Dates: start: 20130515

REACTIONS (2)
  - Lung adenocarcinoma metastatic [Unknown]
  - Pancreatic carcinoma [Unknown]

NARRATIVE: CASE EVENT DATE: 20130508
